FAERS Safety Report 14532473 (Version 1)
Quarter: 2018Q1

REPORT INFORMATION
  Report Type: Report from Study
  Country: None (occurrence: ES)
  Receive Date: 20180214
  Receipt Date: 20180214
  Transmission Date: 20180509
  Serious: Yes (Hospitalization, Other)
  Sender: FDA-Public Use
  Company Number: ES-ABBVIE-17P-144-2126649-00

PATIENT
  Age: 58 Year
  Sex: Male

DRUGS (3)
  1. VENETOCLAX. [Suspect]
     Active Substance: VENETOCLAX
     Indication: CHRONIC LYMPHOCYTIC LEUKAEMIA
     Route: 048
     Dates: start: 201710
  2. VENETOCLAX. [Suspect]
     Active Substance: VENETOCLAX
     Route: 048
     Dates: end: 201801
  3. VENETOCLAX. [Suspect]
     Active Substance: VENETOCLAX
     Route: 048

REACTIONS (6)
  - Tumour lysis syndrome [Recovering/Resolving]
  - Haematotoxicity [Unknown]
  - Neoplasm progression [Not Recovered/Not Resolved]
  - Tumour lysis syndrome [Recovered/Resolved]
  - Thrombocytopenia [Unknown]
  - Influenza [Unknown]

NARRATIVE: CASE EVENT DATE: 2017
